FAERS Safety Report 25116905 (Version 1)
Quarter: 2025Q1

REPORT INFORMATION
  Report Type: Other
  Country: GB (occurrence: GB)
  Receive Date: 20250325
  Receipt Date: 20250325
  Transmission Date: 20250408
  Serious: Yes (Other)
  Sender: GLENMARK
  Company Number: GB-MHRA-TPP43661863C11026758YC1741690219978

PATIENT
  Age: 75 Year
  Sex: Female
  Weight: 62 kg

DRUGS (9)
  1. DAPAGLIFLOZIN [Suspect]
     Active Substance: DAPAGLIFLOZIN
     Indication: Ill-defined disorder
     Dosage: 10 MILLIGRAM, QD, TAKE ONE TABLET ONCE A DAY
     Route: 065
     Dates: start: 20250217
  2. LANSOPRAZOLE [Concomitant]
     Active Substance: LANSOPRAZOLE
     Indication: Ill-defined disorder
     Dosage: 1 DOSAGE FORM, OD, TAKE ONE ONCE DAILY
     Route: 065
     Dates: start: 20250204, end: 20250218
  3. SITAGLIPTIN [Concomitant]
     Active Substance: SITAGLIPTIN
     Indication: Ill-defined disorder
     Dosage: UNK, OD, TAKE ONE DAILY
     Route: 065
     Dates: start: 20250311
  4. ATENOLOL [Concomitant]
     Active Substance: ATENOLOL
     Indication: Ill-defined disorder
     Dosage: UNK, OD, ONE TO BE TAKEN DAILY
     Route: 065
     Dates: start: 20180209
  5. BENDROFLUMETHIAZIDE [Concomitant]
     Active Substance: BENDROFLUMETHIAZIDE
     Indication: Ill-defined disorder
     Dosage: UNK, OD, ONE TO BE TAKEN DAILY
     Route: 065
     Dates: start: 20180209
  6. RAMIPRIL [Concomitant]
     Active Substance: RAMIPRIL
     Indication: Ill-defined disorder
     Dosage: UNK, OD, ONE TO BE TAKEN DAILY
     Route: 065
     Dates: start: 20180209
  7. SIMVASTATIN [Concomitant]
     Active Substance: SIMVASTATIN
     Indication: Ill-defined disorder
     Dosage: UNK, OD, ONE TO BE TAKEN DAILY
     Route: 065
     Dates: start: 20180209
  8. ACETAMINOPHEN [Concomitant]
     Active Substance: ACETAMINOPHEN
     Indication: Ill-defined disorder
     Route: 065
     Dates: start: 20181128
  9. METFORMIN [Concomitant]
     Active Substance: METFORMIN HYDROCHLORIDE
     Indication: Ill-defined disorder
     Dosage: 1 DOSAGE FORM, BID
     Route: 065
     Dates: start: 20200123

REACTIONS (2)
  - Lip swelling [Recovering/Resolving]
  - Paraesthesia oral [Recovering/Resolving]
